FAERS Safety Report 5646712-3 (Version None)
Quarter: 2008Q1

REPORT INFORMATION
  Report Type: 
  Country: None (occurrence: None)
  Receive Date: 20080219
  Receipt Date: 20080125
  Transmission Date: 20080703
  Serious: Yes (Hospitalization)
  Sender: FDA-Public Use
  Company Number: RGD: 57194/ 126

PATIENT
  Age: 74 Year
  Sex: Female

DRUGS (6)
  1. TERBINAFINE HCL [Suspect]
     Indication: FUNGAL INFECTION
     Dosage: 250 MG ORAL
     Route: 048
     Dates: start: 20071114, end: 20071124
  2. TERBINAFINE HCL [Suspect]
     Indication: NAIL INFECTION
     Dosage: 250 MG ORAL
     Route: 048
     Dates: start: 20071114, end: 20071124
  3. ATENOLOL [Suspect]
     Indication: HYPERTENSION
     Dosage: 50 MG ORAL
     Route: 048
     Dates: start: 20050527, end: 20071124
  4. ALENDRONATE (ALENDRONATE ION) [Concomitant]
  5. AMOXICILLIN [Concomitant]
  6. BENDROFLUMETHIAZIDE (BENDROFLUAZIDE) [Concomitant]

REACTIONS (1)
  - CEREBROVASCULAR ACCIDENT [None]
